FAERS Safety Report 9531452 (Version 1)
Quarter: 2013Q3

REPORT INFORMATION
  Report Type: Spontaneous
  Country: US (occurrence: None)
  Receive Date: 20130916
  Receipt Date: 20130916
  Transmission Date: 20140515
  Serious: Yes (Disabling)
  Sender: FDA-Public Use
  Company Number: None

PATIENT
  Age: 60 Year
  Sex: Female
  Weight: 45.36 kg

DRUGS (1)
  1. TIZANIDINE [Suspect]
     Route: 048
     Dates: start: 20130908, end: 20130912

REACTIONS (1)
  - Hallucination [None]
